FAERS Safety Report 6380399-X (Version None)
Quarter: 2009Q3

REPORT INFORMATION
  Report Type: 
  Country: None (occurrence: None)
  Receive Date: 20090924
  Receipt Date: 20090920
  Transmission Date: 20100115
  Serious: Yes (Death)
  Sender: FDA-Public Use
  Company Number: 2009SP026489

PATIENT
  Age: 45 Year
  Sex: Male

DRUGS (2)
  1. VIRAFERONPEG [Suspect]
     Indication: HEPATITIS C
     Dosage: 80 MCG; QD; SC
     Route: 058
  2. RIBAVIRIN [Suspect]
     Indication: HEPATITIS C
     Dosage: 1000 MG; QD; PO
     Route: 048

REACTIONS (1)
  - DEATH [None]
